FAERS Safety Report 6599167-9 (Version None)
Quarter: 2010Q1

REPORT INFORMATION
  Report Type: 
  Country: None (occurrence: None)
  Receive Date: 20100212
  Receipt Date: 20090917
  Transmission Date: 20100710
  Serious: No
  Sender: FDA-Public Use
  Company Number: 2009-00612

PATIENT
  Age: 57 Year
  Sex: Female

DRUGS (8)
  1. ZICAM COLD REMEDY GEL SWABS [Suspect]
     Dosage: Q  3 HRS - 4 DAYS
     Dates: start: 20090501, end: 20090501
  2. ZOCOR [Concomitant]
  3. BENAZEPRIL HYDROCHLORIDE [Concomitant]
  4. FISH OIL [Concomitant]
  5. CALCIUM WITH VITAMIN D [Concomitant]
  6. GLUCOSAMINE/CHONDROITIN [Concomitant]
  7. CINNAMON [Concomitant]
  8. MULTI-VITAMIN [Concomitant]

REACTIONS (1)
  - ANOSMIA [None]
